FAERS Safety Report 21472906 (Version 1)
Quarter: 2022Q4

REPORT INFORMATION
  Report Type: Spontaneous
  Country: US (occurrence: US)
  Receive Date: 20221018
  Receipt Date: 20221018
  Transmission Date: 20230113
  Serious: No
  Sender: FDA-Public Use
  Company Number: US-ORGANON-O2210USA000472

PATIENT
  Sex: Female
  Weight: 97.976 kg

DRUGS (1)
  1. NEXPLANON [Suspect]
     Active Substance: ETONOGESTREL
     Indication: Contraception
     Dosage: 1 IMPLANT OF 68 MILLIGRAM IN LEFT ARM
     Route: 059
     Dates: start: 2019, end: 20221004

REACTIONS (6)
  - Limb discomfort [Recovering/Resolving]
  - Contusion [Recovering/Resolving]
  - Weight decreased [Recovering/Resolving]
  - Menstrual disorder [Recovering/Resolving]
  - Device breakage [Recovered/Resolved]
  - Wrong technique in device usage process [Unknown]

NARRATIVE: CASE EVENT DATE: 20190101
